FAERS Safety Report 8072421-X (Version None)
Quarter: 2012Q1

REPORT INFORMATION
  Report Type: 
  Country: None (occurrence: None)
  Receive Date: 20120126
  Receipt Date: 20120123
  Transmission Date: 20120608
  Serious: Yes (Other)
  Sender: FDA-Public Use
  Company Number: US-SANOFI-AVENTIS-2012SA005013

PATIENT
  Age: 77 Year
  Sex: Male

DRUGS (2)
  1. SOLOSTAR [Suspect]
     Dosage: BEEN USING LANTUS SOLOSTAR PENS FOR ABOUT 5 1/2 YEARS
  2. LANTUS [Suspect]
     Indication: TYPE 2 DIABETES MELLITUS
     Dosage: BEEN USING LANTUS SOLOSTAR PENS FOR ABOUT 5 1/2 YEARS DOSE:36 UNIT(S)
     Route: 058

REACTIONS (2)
  - MYOCARDIAL INFARCTION [None]
  - INJECTION SITE HAEMATOMA [None]
